FAERS Safety Report 20511477 (Version 2)
Quarter: 2023Q1

REPORT INFORMATION
  Report Type: Spontaneous
  Country: US (occurrence: US)
  Receive Date: 20220224
  Receipt Date: 20230223
  Transmission Date: 20230417
  Serious: Yes (Other)
  Sender: FDA-Public Use
  Company Number: US-LANTHEUS-LMI-2021-01278

PATIENT
  Sex: Male

DRUGS (1)
  1. DEFINITY [Suspect]
     Active Substance: PERFLUTREN
     Indication: Echocardiogram
     Dosage: UNK
     Dates: start: 20211005, end: 20211005

REACTIONS (6)
  - Drug hypersensitivity [Recovered/Resolved]
  - Anaphylactic reaction [Recovering/Resolving]
  - Unresponsive to stimuli [Recovered/Resolved]
  - Agonal respiration [Recovering/Resolving]
  - Dyspnoea [Recovering/Resolving]
  - Respiratory arrest [Recovered/Resolved]

NARRATIVE: CASE EVENT DATE: 20211005
